FAERS Safety Report 21768443 (Version 1)
Quarter: 2022Q4

REPORT INFORMATION
  Report Type: Spontaneous
  Country: US (occurrence: US)
  Receive Date: 20221222
  Receipt Date: 20221222
  Transmission Date: 20230113
  Serious: Yes (Hospitalization)
  Sender: FDA-Public Use
  Company Number: US-JAZZ-2022-US-038185

PATIENT
  Age: 7 Day
  Sex: Female
  Weight: 2.04 kg

DRUGS (1)
  1. XYREM [Suspect]
     Active Substance: SODIUM OXYBATE
     Indication: Product used for unknown indication
     Dosage: UNK
     Dates: start: 20221119

REACTIONS (4)
  - Hypoglycaemia [Recovering/Resolving]
  - Agitation [Recovering/Resolving]
  - Gastrointestinal disorder [Recovering/Resolving]
  - Exposure via breast milk [Unknown]
